FAERS Safety Report 9571518 (Version 2)
Quarter: 2015Q2

REPORT INFORMATION
  Report Type: Spontaneous
  Country: IT (occurrence: IT)
  Receive Date: 20130927
  Receipt Date: 20150616
  Transmission Date: 20150821
  Serious: Yes (Hospitalization)
  Sender: FDA-Public Use
  Company Number: 1914027

PATIENT
  Age: 53 Year
  Sex: Female

DRUGS (3)
  1. XELODA [Suspect]
     Active Substance: CAPECITABINE
     Indication: COLON CANCER
     Dosage: DAILY
     Route: 048
     Dates: start: 20130902, end: 20130902
  2. OXALIPLATIN. [Suspect]
     Active Substance: OXALIPLATIN
     Indication: COLON CANCER
     Dosage: DAILY
     Route: 042
     Dates: start: 20130902, end: 20130902
  3. AVASTIN [Suspect]
     Active Substance: BEVACIZUMAB
     Indication: COLON CANCER
     Dosage: DAILY
     Route: 042
     Dates: start: 20130902, end: 20130902

REACTIONS (3)
  - Laryngospasm [Recovered/Resolved]
  - Tachycardia [Recovered/Resolved]
  - Anaphylactic reaction [Recovered/Resolved]

NARRATIVE: CASE EVENT DATE: 20130902
